FAERS Safety Report 24191685 (Version 2)
Quarter: 2024Q4

REPORT INFORMATION
  Report Type: Report from Study
  Country: BR (occurrence: BR)
  Receive Date: 20240808
  Receipt Date: 20241025
  Transmission Date: 20250115
  Serious: Yes (Hospitalization)
  Sender: JOHNSON AND JOHNSON
  Company Number: BR-JNJFOC-20240785120

PATIENT
  Age: 66 Year
  Sex: Male
  Weight: 63 kg

DRUGS (5)
  1. TALVEY [Suspect]
     Active Substance: TALQUETAMAB-TGVS
     Indication: Plasma cell myeloma
     Route: 058
     Dates: start: 20240607
  2. TALVEY [Suspect]
     Active Substance: TALQUETAMAB-TGVS
     Dosage: SECOND DOSE OF ESCALATION
     Route: 065
     Dates: start: 20240706
  3. TALVEY [Suspect]
     Active Substance: TALQUETAMAB-TGVS
     Dosage: FIRST DOSE OF TREATMENT
     Route: 065
     Dates: start: 20240711
  4. TALVEY [Suspect]
     Active Substance: TALQUETAMAB-TGVS
     Dosage: SECOND DOSE OF TREATMENT
     Route: 065
     Dates: start: 20240725
  5. TOCILIZUMAB [Concomitant]
     Active Substance: TOCILIZUMAB
     Indication: Prophylaxis

REACTIONS (12)
  - Pyrexia [Recovered/Resolved]
  - Apathy [Recovered/Resolved]
  - Tremor [Recovered/Resolved]
  - Spinal column injury [Unknown]
  - Hospitalisation [Unknown]
  - Ageusia [Not Recovered/Not Resolved]
  - Injection site scar [Unknown]
  - Onychomadesis [Unknown]
  - Dry mouth [Not Recovered/Not Resolved]
  - Blister [Unknown]
  - Application site irritation [Unknown]
  - Injection site hypersensitivity [Unknown]

NARRATIVE: CASE EVENT DATE: 20240703
